FAERS Safety Report 5872804-X (Version None)
Quarter: 2008Q3

REPORT INFORMATION
  Report Type: 
  Country: None (occurrence: None)
  Receive Date: 20080903
  Receipt Date: 20080819
  Transmission Date: 20090109
  Serious: Yes (Other)
  Sender: FDA-Public Use
  Company Number: A-NJ2008-21409

PATIENT
  Age: 78 Year
  Sex: Male
  Weight: 99.1 kg

DRUGS (22)
  1. VENTAVIS(ILOPROST INHALATION SOLUTION UNKNOWN US) INHALATION VAPOUR, S [Suspect]
     Indication: PULMONARY ARTERIAL HYPERTENSION
     Dosage: 5 UG, RESPIRATORY, 2.5 UG, RESPIRATORY
     Route: 055
     Dates: start: 20080723, end: 20080723
  2. VENTAVIS(ILOPROST INHALATION SOLUTION UNKNOWN US) INHALATION VAPOUR, S [Suspect]
     Indication: PULMONARY ARTERIAL HYPERTENSION
     Dosage: 5 UG, RESPIRATORY, 2.5 UG, RESPIRATORY
     Route: 055
     Dates: start: 20080723, end: 20080723
  3. TRACLEER [Concomitant]
  4. ACTOS [Concomitant]
  5. GLUCOPHAGE [Concomitant]
  6. GLUCOTROL [Concomitant]
  7. ASPIRIN [Concomitant]
  8. IMDUR (ISOSORBIDE) [Concomitant]
  9. PLAVIX [Concomitant]
  10. NORVASC [Concomitant]
  11. ALLOPURINOL (ALLOPURINOLOL) [Concomitant]
  12. COLCHICINE (COLCHICINE) [Concomitant]
  13. AVODART [Concomitant]
  14. UROXATRAL [Concomitant]
  15. POTASSIUM (POTASSIUM) [Concomitant]
  16. PREDNISONE TAB [Concomitant]
  17. SYNTHROID [Concomitant]
  18. VITAMIN B6 [Concomitant]
  19. ISONIAZID [Concomitant]
  20. BACLOFEN [Concomitant]
  21. ZETIA [Concomitant]
  22. ANTIVERT (MECLOZINE HYDROCHLORIDE) [Concomitant]

REACTIONS (10)
  - ASTHENIA [None]
  - BLOOD PRESSURE INCREASED [None]
  - CHEST PAIN [None]
  - DIZZINESS [None]
  - DYSPNOEA [None]
  - FEELING ABNORMAL [None]
  - HEADACHE [None]
  - HYPERSENSITIVITY [None]
  - NAUSEA [None]
  - SYNCOPE [None]
